FAERS Safety Report 4675382-6 (Version None)
Quarter: 2005Q2

REPORT INFORMATION
  Report Type: 
  Country: None (occurrence: None)
  Receive Date: 20050527
  Receipt Date: 20050211
  Transmission Date: 20051028
  Serious: No
  Sender: FDA-Public Use
  Company Number: US-BRISTOL-MYERS SQUIBB COMPANY-12859658

PATIENT
  Age: 89 Year
  Sex: Female
  Weight: 63 kg

DRUGS (1)
  1. ABILIFY [Suspect]
     Indication: AGGRESSION
     Dosage: REDUCED TO 5 MG/DAY, THEN DISCONTINUED
     Route: 048
     Dates: end: 20050211

REACTIONS (3)
  - COORDINATION ABNORMAL [None]
  - MUSCULAR WEAKNESS [None]
  - SEDATION [None]
